FAERS Safety Report 21486420 (Version 1)
Quarter: 2022Q4

REPORT INFORMATION
  Report Type: Spontaneous
  Country: US (occurrence: None)
  Receive Date: 20221019
  Receipt Date: 20221019
  Transmission Date: 20230112
  Serious: No
  Sender: FDA-Public Use
  Company Number: None

PATIENT
  Age: 40 Year
  Sex: Male
  Weight: 131.54 kg

DRUGS (1)
  1. COSENTYX [Suspect]
     Active Substance: SECUKINUMAB
     Indication: Psoriasis
     Dosage: INJECT 300MG (2 PENS) SUBCUTANEOUSLY EVERY WEEK FOR 5 WEEKS AS DIRECTED
     Route: 058
     Dates: start: 202109

REACTIONS (1)
  - Pharyngitis streptococcal [None]
